FAERS Safety Report 16243686 (Version 2)
Quarter: 2019Q2

REPORT INFORMATION
  Report Type: Spontaneous
  Country: US (occurrence: US)
  Receive Date: 20190426
  Receipt Date: 20190625
  Transmission Date: 20190711
  Serious: No
  Sender: FDA-Public Use
  Company Number: US-PFIZER INC-2019172597

PATIENT
  Age: 47 Year
  Sex: Female
  Weight: 74 kg

DRUGS (3)
  1. TAMOXIFEN [Concomitant]
     Active Substance: TAMOXIFEN
     Indication: BREAST CANCER FEMALE
     Dosage: UNK
  2. LYRICA [Suspect]
     Active Substance: PREGABALIN
     Dosage: 100 MG, 2X/DAY (50 MG CAPSULES - 2 CAPSULES TAKEN BY MOUTH TWICE DAILY)
     Route: 048
  3. LYRICA [Suspect]
     Active Substance: PREGABALIN
     Indication: FIBROMYALGIA
     Dosage: 100 MG, DAILY(50 MG- 2 CAPSULES TAKEN BY MOUTH DAILY)
     Route: 048

REACTIONS (2)
  - Dizziness [Not Recovered/Not Resolved]
  - Therapeutic product effect incomplete [Unknown]
